FAERS Safety Report 14170527 (Version 1)
Quarter: 2017Q4

REPORT INFORMATION
  Report Type: Spontaneous
  Country: US (occurrence: US)
  Receive Date: 20171108
  Receipt Date: 20171108
  Transmission Date: 20180321
  Serious: Yes (Other)
  Sender: FDA-Public Use
  Company Number: US-BAYER-2017-209272

PATIENT
  Age: 34 Year
  Sex: Female
  Weight: 95 kg

DRUGS (2)
  1. ALKA-SELTZER HEARTBURN PLUS GAS RELIEFCHEWS TROPICAL PUNCH [Suspect]
     Active Substance: CALCIUM CARBONATE\DIMETHICONE
     Indication: GASTROINTESTINAL DISORDER
     Dosage: 2 DF, PRN
     Route: 048
     Dates: start: 2017
  2. ZYRTEC [Concomitant]
     Active Substance: CETIRIZINE HYDROCHLORIDE
     Dosage: UNK

REACTIONS (1)
  - Loss of consciousness [Recovered/Resolved]

NARRATIVE: CASE EVENT DATE: 20171028
